FAERS Safety Report 8367183 (Version 2)
Quarter: 2013Q1

REPORT INFORMATION
  Report Type: Report from Study
  Country: US (occurrence: US)
  Receive Date: 20120128
  Receipt Date: 20130130
  Transmission Date: 20140127
  Serious: Yes (Other)
  Sender: FDA-Public Use
  Company Number: US-ABBOTT-11P-163-0724860-00

PATIENT
  Age: 71 Year
  Sex: Female

DRUGS (2)
  1. HUMIRA 40 MG/0.8 ML PEN [Suspect]
     Indication: RHEUMATOID ARTHRITIS
     Dates: start: 2010, end: 201105
  2. HUMIRA 40 MG/0.8 ML PEN [Suspect]
     Dosage: Q WEEK THIS MONTH ONLY; THE RESUME QOW
     Dates: start: 201105, end: 201105

REACTIONS (3)
  - Cholecystectomy [Recovered/Resolved]
  - Local swelling [Unknown]
  - Pain in extremity [Unknown]
